FAERS Safety Report 9124713 (Version 1)
Quarter: 2013Q1

REPORT INFORMATION
  Report Type: Spontaneous
  Country: US (occurrence: US)
  Receive Date: 20130116
  Receipt Date: 20130116
  Transmission Date: 20140127
  Serious: Yes (Disabling)
  Sender: FDA-Public Use
  Company Number: US-009507513-1301USA003709

PATIENT
  Age: 10 Year
  Sex: Male

DRUGS (1)
  1. SINGULAIR [Suspect]
     Dosage: 10 MG, UNK

REACTIONS (2)
  - Tremor [Unknown]
  - Insomnia [Unknown]
